FAERS Safety Report 6457100-4 (Version None)
Quarter: 2009Q4

REPORT INFORMATION
  Report Type: 
  Country: None (occurrence: None)
  Receive Date: 20091125
  Receipt Date: 20091119
  Transmission Date: 20100525
  Serious: Yes (Hospitalization)
  Sender: FDA-Public Use
  Company Number: B0596920A

PATIENT
  Sex: Female

DRUGS (7)
  1. DILATREND [Suspect]
     Indication: ESSENTIAL HYPERTENSION
     Dosage: 25MG PER DAY
     Route: 048
     Dates: start: 20090101, end: 20090720
  2. INSULIN ASPART [Suspect]
     Dosage: 19IU PER DAY
     Route: 058
     Dates: start: 20090101, end: 20090720
  3. LANTUS [Suspect]
     Dosage: 16IU PER DAY
     Route: 058
     Dates: start: 20090101, end: 20090720
  4. INEGY [Concomitant]
  5. PLAVIX [Concomitant]
  6. ASPIRIN [Concomitant]
  7. ZYLORIC [Concomitant]

REACTIONS (6)
  - ASTHENIA [None]
  - CONFUSIONAL STATE [None]
  - HYPERHIDROSIS [None]
  - HYPOGLYCAEMIA [None]
  - PALLOR [None]
  - SOPOR [None]
